FAERS Safety Report 6157895-3 (Version None)
Quarter: 2009Q2

REPORT INFORMATION
  Report Type: 
  Country: None (occurrence: None)
  Receive Date: 20090417
  Receipt Date: 20090408
  Transmission Date: 20091009
  Serious: Yes (Other)
  Sender: FDA-Public Use
  Company Number: GB-RANBAXY-2009RR-23385

PATIENT
  Age: 75 Year
  Sex: Female

DRUGS (12)
  1. CLARITHROMYCIN [Suspect]
     Indication: LOWER RESPIRATORY TRACT INFECTION
     Dosage: 500 MG, UNK
     Route: 048
     Dates: start: 20090319, end: 20090325
  2. ASPIRIN [Concomitant]
  3. BETAHISTINE DIHYDROCHLORIDE [Concomitant]
  4. BUMETANIDE [Concomitant]
  5. CALCIUM CARBONATE [Concomitant]
  6. CELIPROLOL [Concomitant]
  7. ISOSORBIDE MONONITRATE [Concomitant]
  8. OMEPRAZOLE [Concomitant]
  9. PRAVASTATIN SODIUM [Concomitant]
  10. SALBUTAMOL [Concomitant]
  11. SERETIDE [Concomitant]
  12. TIOTROPIUM BROMIDE [Concomitant]

REACTIONS (2)
  - ELECTROCARDIOGRAM QT PROLONGED [None]
  - HYPOKALAEMIA [None]
